FAERS Safety Report 4629324-X (Version None)
Quarter: 2005Q2

REPORT INFORMATION
  Report Type: 
  Country: None (occurrence: None)
  Receive Date: 20050405
  Receipt Date: 20050322
  Transmission Date: 20051028
  Serious: Yes (Hospitalization)
  Sender: FDA-Public Use
  Company Number: 2005-BP-04612AU

PATIENT
  Age: 84 Year
  Sex: Female

DRUGS (9)
  1. MOBIC [Suspect]
     Dosage: PO
     Route: 048
     Dates: end: 20040604
  2. PLAVIX [Suspect]
     Dosage: 75 MG (75 MG, ONE TABLET ONCE DAILY) PO
     Route: 048
     Dates: end: 20040607
  3. SORBITOL (NR) [Concomitant]
  4. MIANSERIN HYDROCHLORIDE (TA) [Concomitant]
  5. FLUVASTATIN (FLUVASTATIN) (KAH) [Concomitant]
  6. OMEPRAZOLE (OMEPRAZOLE) (TAP) [Concomitant]
  7. THYROXINE SODIUM (LEVOTHYROXINE SODIUM) (TA) [Concomitant]
  8. ENALAPRIL MALEATE (ENALAPRIL MALEATE) (TA) [Concomitant]
  9. LERCANIDIPINE HYDROCHLORIDE (LERCANIDIPINE HYDROCHLORIDE) (TA) [Concomitant]

REACTIONS (5)
  - ABDOMINAL PAIN UPPER [None]
  - GASTRITIS [None]
  - OESOPHAGEAL PERFORATION [None]
  - RECTAL HAEMORRHAGE [None]
  - REFLUX OESOPHAGITIS [None]
